FAERS Safety Report 6518159-9 (Version None)
Quarter: 2009Q4

REPORT INFORMATION
  Report Type: 
  Country: None (occurrence: None)
  Receive Date: 20091223
  Receipt Date: 20091223
  Transmission Date: 20100525
  Serious: Yes (Other)
  Sender: FDA-Public Use
  Company Number: None

PATIENT
  Age: 40 Year
  Sex: Female
  Weight: 110.2241 kg

DRUGS (1)
  1. CYMBALTA [Suspect]
     Indication: ANXIETY
     Dosage: 30MG 1 PER DAY PO
     Route: 048
     Dates: start: 20091209, end: 20091210

REACTIONS (16)
  - BLOOD PRESSURE FLUCTUATION [None]
  - CHILLS [None]
  - COLD SWEAT [None]
  - CONSTIPATION [None]
  - FATIGUE [None]
  - HEADACHE [None]
  - HEART RATE ABNORMAL [None]
  - HOT FLUSH [None]
  - HYPOGLYCAEMIA [None]
  - INSOMNIA [None]
  - MYALGIA [None]
  - NAUSEA [None]
  - PAIN [None]
  - PALPITATIONS [None]
  - PANIC ATTACK [None]
  - TREMOR [None]
